FAERS Safety Report 7426312-5 (Version None)
Quarter: 2011Q2

REPORT INFORMATION
  Report Type: 
  Country: None (occurrence: None)
  Receive Date: 20110420
  Receipt Date: 20110414
  Transmission Date: 20111010
  Serious: Yes (Death)
  Sender: FDA-Public Use
  Company Number: B0692990A

PATIENT
  Sex: Female

DRUGS (2)
  1. XELODA [Suspect]
     Dosage: 1650MG PER DAY
     Route: 048
     Dates: start: 20100812, end: 20101111
  2. TYVERB [Suspect]
     Dosage: 1250MG PER DAY
     Route: 048
     Dates: start: 20100928, end: 20101111

REACTIONS (4)
  - METASTASES TO LIVER [None]
  - DISEASE PROGRESSION [None]
  - METASTASES TO BONE [None]
  - BACK PAIN [None]
